FAERS Safety Report 8262101-X (Version None)
Quarter: 2012Q2

REPORT INFORMATION
  Report Type: 
  Country: None (occurrence: None)
  Receive Date: 20120405
  Receipt Date: 20120328
  Transmission Date: 20120825
  Serious: Yes (Hospitalization, Other)
  Sender: FDA-Public Use
  Company Number: PHFR2012GB001847

PATIENT
  Sex: Male

DRUGS (3)
  1. CLOZARIL [Suspect]
     Indication: SCHIZOPHRENIA
     Dosage: 150 MG, UNK
     Route: 048
     Dates: start: 20100105, end: 20110719
  2. CLOZARIL [Suspect]
     Dosage: 100 MG, THE NEXT NIGHT
  3. CLOZARIL [Suspect]
     Dosage: 200 MG, ONE NIGHT

REACTIONS (1)
  - MEDICATION ERROR [None]
